FAERS Safety Report 23153532 (Version 2)
Quarter: 2024Q1

REPORT INFORMATION
  Report Type: Spontaneous
  Country: KR (occurrence: KR)
  Receive Date: 20231107
  Receipt Date: 20240109
  Transmission Date: 20240409
  Serious: Yes (Death, Hospitalization, Other)
  Sender: FDA-Public Use
  Company Number: KR-009507513-2311KOR001755

PATIENT
  Age: 43 Year
  Sex: Male
  Weight: 75 kg

DRUGS (9)
  1. PREVYMIS [Suspect]
     Active Substance: LETERMOVIR
     Indication: Antiviral prophylaxis
     Dosage: STRENGTH: 240 MG, FREQUENCY: QD||QD
     Route: 048
     Dates: start: 20220826, end: 20220906
  2. PREVYMIS [Suspect]
     Active Substance: LETERMOVIR
     Indication: Antiviral prophylaxis
     Dosage: STRENGTH: 480 MG, FREQUENCY: QD
     Route: 048
     Dates: start: 20220907, end: 20220929
  3. I.V.-GLOBULIN S [Concomitant]
     Indication: Prophylaxis against graft versus host disease
     Dosage: 40 GRAM, QD
     Route: 042
     Dates: start: 20220907
  4. PROBIOTICS NOS [Concomitant]
     Active Substance: PROBIOTICS NOS
     Indication: Diarrhoea
     Dosage: 1 CAPSULE (CAP), BID
     Route: 048
     Dates: start: 20220930
  5. MEGACE [Concomitant]
     Active Substance: MEGESTROL ACETATE
     Indication: Decreased appetite
     Dosage: 5 MILLILITER, QD, STRENGTH: 625NG/5ML
     Route: 048
     Dates: start: 20220930
  6. PROGRAF [Concomitant]
     Active Substance: TACROLIMUS
     Indication: Prophylaxis against graft versus host disease
     Dosage: 1 CAPSULE, BID
     Route: 048
     Dates: start: 20220921
  7. SULFAMETHOXAZOLE\TRIMETHOPRIM [Concomitant]
     Active Substance: SULFAMETHOXAZOLE\TRIMETHOPRIM
     Indication: Infection prophylaxis
     Dosage: 1 TABLET (400MG / 80MG), BID
     Route: 048
     Dates: start: 20220929
  8. VALTREX [Concomitant]
     Active Substance: VALACYCLOVIR HYDROCHLORIDE
     Indication: Infection prophylaxis
     Dosage: 1 TABLET, BID
     Route: 048
     Dates: start: 20220929
  9. XANAX [Concomitant]
     Active Substance: ALPRAZOLAM
     Indication: Insomnia
     Dosage: 1 TABLET, QD
     Route: 048
     Dates: start: 20220825

REACTIONS (1)
  - Acute graft versus host disease in skin [Fatal]

NARRATIVE: CASE EVENT DATE: 20221018
